FAERS Safety Report 9302758 (Version 5)
Quarter: 2013Q3

REPORT INFORMATION
  Report Type: Spontaneous
  Country: GB (occurrence: GB)
  Receive Date: 20130522
  Receipt Date: 20130805
  Transmission Date: 20140515
  Serious: Yes (Hospitalization)
  Sender: FDA-Public Use
  Company Number: PHFR2013GB002933

PATIENT
  Age: 44 Year
  Sex: Female

DRUGS (3)
  1. CLOZARIL [Suspect]
     Indication: SCHIZOPHRENIA
     Dosage: UNK
     Route: 048
     Dates: start: 20130122
  2. SODIUM VALPROATE [Concomitant]
     Dosage: 2.4 G
  3. OLANZAPINE [Concomitant]
     Dosage: UNK

REACTIONS (8)
  - Fall [Unknown]
  - Ankle fracture [Unknown]
  - Osteoporosis [Unknown]
  - Asthma [Unknown]
  - Sedation [Unknown]
  - Myoclonus [Unknown]
  - Lower respiratory tract infection [Unknown]
  - White blood cell count increased [Recovered/Resolved]
